FAERS Safety Report 7385814-0 (Version None)
Quarter: 2011Q1

REPORT INFORMATION
  Report Type: 
  Country: None (occurrence: None)
  Receive Date: 20110331
  Receipt Date: 20110325
  Transmission Date: 20110831
  Serious: Yes (Other)
  Sender: FDA-Public Use
  Company Number: US-PFIZER INC-2011055764

PATIENT
  Age: 63 Year
  Sex: Male

DRUGS (11)
  1. ASPIRIN [Concomitant]
     Dosage: UNK
     Route: 048
     Dates: start: 20101027
  2. LISINOPRIL [Concomitant]
     Dosage: 10 MG, UNK
  3. HYDROCHLOROTHIAZIDE [Concomitant]
     Dosage: 12.5 MG, UNK
  4. SUTENT [Suspect]
     Indication: RENAL CELL CARCINOMA
     Dosage: 50 MG, 1X/DAY FOR 28 DAYS, THEN 2 WEEKS OFF
     Route: 048
     Dates: start: 20080201
  5. AVAPRO [Concomitant]
     Dosage: UNK
     Route: 048
     Dates: start: 20080601
  6. RANITIDINE [Concomitant]
     Dosage: 75 MG, UNK
     Route: 048
     Dates: start: 20080201
  7. FENOFIBRIC ACID [Concomitant]
     Dosage: 135 MG, UNK
     Dates: end: 20110203
  8. VITAMIN B-12 [Concomitant]
     Dosage: .75 MG, UNK
  9. ATROPINE W/DIPHENOXYLATE [Concomitant]
     Dosage: UNK
  10. GLIMEPIRIDE [Concomitant]
     Dosage: 1 MG, UNK
     Route: 048
     Dates: start: 20070901
  11. COLESEVELAM [Concomitant]
     Dosage: 3.75 G, UNK
     Route: 048

REACTIONS (5)
  - FATIGUE [None]
  - ORTHOPNOEA [None]
  - CHEST DISCOMFORT [None]
  - EJECTION FRACTION DECREASED [None]
  - DYSPNOEA [None]
